FAERS Safety Report 8289202-4 (Version None)
Quarter: 2012Q2

REPORT INFORMATION
  Report Type: 
  Country: None (occurrence: None)
  Receive Date: 20120417
  Receipt Date: 20120410
  Transmission Date: 20120825
  Serious: Yes (Other)
  Sender: FDA-Public Use
  Company Number: PHHY2012JP027781

PATIENT
  Age: 85 Year
  Sex: Male

DRUGS (7)
  1. SPIRONOLACTONE [Concomitant]
     Route: 048
  2. NICARDIPINE HCL [Suspect]
     Dosage: 60 MG/DAILY
     Route: 048
     Dates: start: 20111101, end: 20120329
  3. HYDERGINE [Suspect]
     Dosage: 6 MG, QD
     Dates: start: 20111101, end: 20120328
  4. ROZEREM [Concomitant]
     Route: 048
  5. HYDERGINE [Suspect]
     Dosage: 3 MG/DAILY
     Route: 048
     Dates: start: 20120329
  6. DIGOXIN [Concomitant]
     Route: 048
  7. LASIX [Concomitant]
     Route: 048

REACTIONS (4)
  - DIZZINESS [None]
  - HYPOTENSION [None]
  - TRANSIENT ISCHAEMIC ATTACK [None]
  - LOSS OF CONSCIOUSNESS [None]
